FAERS Safety Report 5374628-9 (Version None)
Quarter: 2007Q2

REPORT INFORMATION
  Report Type: 
  Country: None (occurrence: None)
  Receive Date: 20070627
  Receipt Date: 20070412
  Transmission Date: 20071010
  Serious: Yes (Hospitalization)
  Sender: FDA-Public Use
  Company Number: 492509

PATIENT
  Age: 70 Year
  Sex: Female

DRUGS (3)
  1. XELODA [Suspect]
     Indication: COLON CANCER
     Dosage: 1000 MG 2 PER DAY ORAL
     Route: 048
  2. ........................ [Concomitant]
  3. ................... [Concomitant]

REACTIONS (6)
  - CHEST PAIN [None]
  - CONSTIPATION [None]
  - DIARRHOEA [None]
  - GALLOP RHYTHM PRESENT [None]
  - HEART RATE IRREGULAR [None]
  - HYPOKALAEMIA [None]
